FAERS Safety Report 8461171-3 (Version None)
Quarter: 2012Q2

REPORT INFORMATION
  Report Type: 
  Country: None (occurrence: None)
  Receive Date: 20120625
  Receipt Date: 20120619
  Transmission Date: 20120825
  Serious: No
  Sender: FDA-Public Use
  Company Number: US-PFIZER INC-2012148051

PATIENT
  Sex: Female
  Weight: 72.6 kg

DRUGS (3)
  1. LYRICA [Suspect]
     Indication: DIABETIC NEUROPATHY
     Dosage: 150 MG, 2X/DAY
     Route: 048
     Dates: start: 20110101
  2. METOPROLOL [Concomitant]
     Dosage: UNK
  3. WARFARIN [Concomitant]
     Indication: ATRIAL FIBRILLATION
     Dosage: 2.5 MG, DAILY

REACTIONS (3)
  - PAIN IN EXTREMITY [None]
  - DRUG INEFFECTIVE [None]
  - HYPOAESTHESIA [None]
